FAERS Safety Report 11046904 (Version 1)
Quarter: 2015Q2

REPORT INFORMATION
  Report Type: Spontaneous
  Country: US (occurrence: None)
  Receive Date: 20150417
  Receipt Date: 20150417
  Transmission Date: 20150821
  Serious: Yes (Hospitalization)
  Sender: FDA-Public Use
  Company Number: None

PATIENT
  Age: 65 Year
  Sex: Male
  Weight: 103.5 kg

DRUGS (2)
  1. WARFARIN [Suspect]
     Active Substance: WARFARIN
     Indication: ATRIAL FIBRILLATION
     Dosage: 5 MG OTHER PO
     Route: 048
     Dates: start: 20140918, end: 20150228
  2. ASPIRIN. [Suspect]
     Active Substance: ASPIRIN
     Indication: CORONARY ARTERY DISEASE
     Route: 048
     Dates: start: 20121029

REACTIONS (5)
  - Diarrhoea haemorrhagic [None]
  - Diverticulitis [None]
  - Contusion [None]
  - Rectal haemorrhage [None]
  - Diarrhoea infectious [None]

NARRATIVE: CASE EVENT DATE: 20150227
